FAERS Safety Report 17530299 (Version 2)
Quarter: 2021Q2

REPORT INFORMATION
  Report Type: Report from Study
  Country: CO (occurrence: CO)
  Receive Date: 20200311
  Receipt Date: 20210407
  Transmission Date: 20210716
  Serious: Yes (Hospitalization)
  Sender: FDA-Public Use
  Company Number: CO-JNJFOC-20190822813

PATIENT
  Age: 28 Year
  Sex: Male
  Weight: 68 kg

DRUGS (4)
  1. RISPERDAL CONSTA [Suspect]
     Active Substance: RISPERIDONE
     Route: 030
     Dates: end: 20201216
  2. RISPERDAL CONSTA [Suspect]
     Active Substance: RISPERIDONE
     Route: 030
     Dates: start: 20190415, end: 20190915
  3. RISPERDAL CONSTA [Suspect]
     Active Substance: RISPERIDONE
     Indication: SCHIZOPHRENIA
     Route: 030
     Dates: start: 20180614, end: 201811
  4. RISPERDAL CONSTA [Suspect]
     Active Substance: RISPERIDONE
     Route: 030
     Dates: start: 20191227, end: 20191227

REACTIONS (7)
  - Aggression [Recovered/Resolved]
  - Schizophrenia [Recovered/Resolved]
  - Eating disorder [Recovered/Resolved]
  - Aphasia [Recovered/Resolved]
  - Abnormal behaviour [Recovered/Resolved]
  - Poor personal hygiene [Recovered/Resolved]
  - Insomnia [Recovered/Resolved]

NARRATIVE: CASE EVENT DATE: 20190806
